FAERS Safety Report 10830436 (Version 1)
Quarter: 2015Q1

REPORT INFORMATION
  Report Type: Spontaneous
  Country: JP (occurrence: JP)
  Receive Date: 20150219
  Receipt Date: 20150219
  Transmission Date: 20150721
  Serious: Yes (Hospitalization)
  Sender: FDA-Public Use
  Company Number: PHJP2015JP001241

PATIENT
  Age: 1 Year
  Sex: Male

DRUGS (1)
  1. EXJADE [Suspect]
     Active Substance: DEFERASIROX
     Indication: IRON OVERLOAD
     Dosage: 250 MG, QD
     Route: 048
     Dates: end: 20150126

REACTIONS (5)
  - Diarrhoea [Recovering/Resolving]
  - Dermatitis [Unknown]
  - Dehydration [Unknown]
  - Off label use [Unknown]
  - Gastroenteritis norovirus [Recovering/Resolving]

NARRATIVE: CASE EVENT DATE: 201412
